FAERS Safety Report 10378701 (Version 6)
Quarter: 2014Q4

REPORT INFORMATION
  Report Type: Spontaneous
  Country: US (occurrence: US)
  Receive Date: 20140812
  Receipt Date: 20141114
  Transmission Date: 20150528
  Serious: Yes (Death, Life-Threatening, Hospitalization, Other)
  Sender: FDA-Public Use
  Company Number: US-ACTELION-A-NJ2014-103281

PATIENT
  Age: 53 Year
  Sex: Female

DRUGS (2)
  1. REVATIO [Concomitant]
     Active Substance: SILDENAFIL CITRATE
  2. VELETRI [Suspect]
     Active Substance: EPOPROSTENOL
     Indication: PULMONARY ARTERIAL HYPERTENSION
     Dosage: 43 NG/KG, PER MIN
     Route: 042
     Dates: start: 20111201, end: 20141021

REACTIONS (14)
  - Renal failure [Unknown]
  - Right ventricular failure [Unknown]
  - Dyspnoea [Unknown]
  - Cardio-respiratory arrest [Unknown]
  - Hypotension [Unknown]
  - Condition aggravated [Unknown]
  - Shock [Unknown]
  - Fluid retention [Unknown]
  - Paracentesis [Unknown]
  - Malaise [Unknown]
  - Haemoglobin decreased [Unknown]
  - Device issue [Unknown]
  - Pulmonary arterial hypertension [Fatal]
  - Dialysis [Unknown]

NARRATIVE: CASE EVENT DATE: 20140728
